FAERS Safety Report 9399199 (Version 2)
Quarter: 2013Q3

REPORT INFORMATION
  Report Type: Spontaneous
  Country: GB (occurrence: None)
  Receive Date: 20130710
  Receipt Date: 20130717
  Transmission Date: 20140515
  Serious: Yes (Disabling)
  Sender: FDA-Public Use
  Company Number: AUR-APL-2013-05700

PATIENT
  Age: 35 Year
  Sex: Female
  Weight: 76.2 kg

DRUGS (1)
  1. CITALOPRAM [Suspect]
     Indication: DEPRESSION
     Route: 048
     Dates: start: 20121010, end: 20130305

REACTIONS (4)
  - Fatigue [None]
  - Encephalomyelitis [None]
  - Myalgia [None]
  - Chronic fatigue syndrome [None]
